FAERS Safety Report 6195946-0 (Version None)
Quarter: 2009Q2

REPORT INFORMATION
  Report Type: 
  Country: None (occurrence: None)
  Receive Date: 20090520
  Receipt Date: 20090512
  Transmission Date: 20091009
  Serious: Yes (Hospitalization)
  Sender: FDA-Public Use
  Company Number: US-JNJFOC-20090502586

PATIENT
  Age: 29 Year
  Sex: Female

DRUGS (9)
  1. HALOPERIDOL [Suspect]
     Dosage: AT BEDTIME
     Route: 048
  2. HALOPERIDOL [Suspect]
     Indication: POSTPARTUM DEPRESSION
     Dosage: AT BEDTIME
     Route: 048
  3. HALOPERIDOL [Suspect]
     Indication: PSYCHOTIC DISORDER
     Route: 048
  4. LORAZEPAM [Suspect]
     Route: 048
  5. LORAZEPAM [Suspect]
     Indication: DRUG USE FOR UNKNOWN INDICATION
     Route: 048
  6. SERTRALINE HCL [Suspect]
     Indication: DRUG USE FOR UNKNOWN INDICATION
     Route: 048
  7. TIZANIDINE HCL [Concomitant]
     Dosage: AT BEDTIME
     Route: 048
  8. BENZTROPEINE [Concomitant]
     Route: 048
  9. BENZTROPEINE [Concomitant]
     Dosage: AT BEDTIME
     Route: 048

REACTIONS (1)
  - MUSCLE SPASTICITY [None]
